FAERS Safety Report 15739204 (Version 1)
Quarter: 2018Q4

REPORT INFORMATION
  Report Type: Spontaneous
  Country: FR (occurrence: FR)
  Receive Date: 20181219
  Receipt Date: 20181219
  Transmission Date: 20190205
  Serious: Yes (Death, Congenital Anomaly)
  Sender: FDA-Public Use
  Company Number: FR-TEVA-2018-FR-987659

PATIENT
  Age: 0 Day
  Sex: Male

DRUGS (2)
  1. VENLAFAXINE [Concomitant]
     Active Substance: VENLAFAXINE HYDROCHLORIDE
     Indication: MAJOR DEPRESSION
     Route: 064
     Dates: start: 20170919, end: 20180218
  2. LOSARTAN POTASSIQUE [Suspect]
     Active Substance: LOSARTAN POTASSIUM
     Indication: HYPERTENSION
     Route: 064
     Dates: start: 20170919, end: 20180215

REACTIONS (3)
  - Pulmonary hypoplasia [Not Recovered/Not Resolved]
  - Renal aplasia [Not Recovered/Not Resolved]
  - Spine malformation [Not Recovered/Not Resolved]

NARRATIVE: CASE EVENT DATE: 20180206
